FAERS Safety Report 23096778 (Version 3)
Quarter: 2023Q4

REPORT INFORMATION
  Report Type: Report from Study
  Country: US (occurrence: US)
  Receive Date: 20231023
  Receipt Date: 20231207
  Transmission Date: 20240110
  Serious: Yes (Hospitalization)
  Sender: FDA-Public Use
  Company Number: US-ABBVIE-5435226

PATIENT
  Sex: Male

DRUGS (3)
  1. IMBRUVICA [Suspect]
     Active Substance: IBRUTINIB
     Indication: Non-Hodgkin^s lymphoma
     Dosage: TIME INTERVAL: 0.33333333 DAYS: DRUG END DATE 2023
     Route: 048
     Dates: start: 20230610
  2. IMBRUVICA [Suspect]
     Active Substance: IBRUTINIB
     Indication: Non-Hodgkin^s lymphoma
     Dosage: DRUG START DATE 2023
     Route: 048
     Dates: end: 20231016
  3. BRUKINSA [Suspect]
     Active Substance: ZANUBRUTINIB
     Indication: Non-Hodgkin^s lymphoma
     Route: 065
     Dates: start: 20211021

REACTIONS (13)
  - Hospitalisation [Unknown]
  - Ear infection [Unknown]
  - Off label use [Unknown]
  - Abdominal pain upper [Unknown]
  - Nausea [Unknown]
  - Adverse drug reaction [Unknown]
  - Hypertension [Unknown]
  - Chest pain [Unknown]
  - Nasopharyngitis [Unknown]
  - Vomiting [Unknown]
  - Hypotension [Unknown]
  - Loss of personal independence in daily activities [Unknown]
  - Emotional disorder [Unknown]

NARRATIVE: CASE EVENT DATE: 20230101
